FAERS Safety Report 19473967 (Version 2)
Quarter: 2022Q1

REPORT INFORMATION
  Report Type: 
  Country: US (occurrence: US)
  Receive Date: 20210629
  Receipt Date: 20220311
  Transmission Date: 20220423
  Serious: Yes (Other)
  Sender: FDA-Public Use
  Company Number: US-FRESENIUS MEDICAL CARE RENAL THERAPIES GROUP-FMC-2106-001002

PATIENT
  Age: 88 Year
  Sex: Male
  Weight: 64 kg

DRUGS (2)
  1. DELFLEX WITH DEXTROSE 1.5% LOW MAGNESIUM LOW CALCIUM [Suspect]
     Active Substance: CALCIUM CHLORIDE\DEXTROSE\MAGNESIUM CHLORIDE\SODIUM CHLORIDE\SODIUM LACTATE
     Indication: End stage renal disease
     Dosage: 2000 ML FOR 4 CYCLES WITH NO LAST FILL AND A DAYTIME EXCHANGE OF 2000 ML, SINCE 09/JAN/2020
     Route: 033
  2. DELFLEX WITH DEXTROSE 2.5% LOW MAGNESIUM LOW CALCIUM [Suspect]
     Active Substance: CALCIUM CHLORIDE\DEXTROSE\MAGNESIUM CHLORIDE\SODIUM CHLORIDE\SODIUM LACTATE
     Indication: End stage renal disease
     Dosage: 2000 ML FOR 4 CYCLES WITH NO LAST FILL AND A DAYTIME EXCHANGE OF 2000 ML, SINCE 09/JAN/2020
     Route: 033

REACTIONS (1)
  - Peritonitis bacterial [Recovered/Resolved]
